FAERS Safety Report 19890076 (Version 2)
Quarter: 2021Q4

REPORT INFORMATION
  Report Type: Spontaneous
  Country: SG (occurrence: SG)
  Receive Date: 20210928
  Receipt Date: 20211007
  Transmission Date: 20220303
  Serious: Yes (Other)
  Sender: FDA-Public Use
  Company Number: SG-ROCHE-2543986

PATIENT
  Age: 78 Year
  Sex: Female

DRUGS (8)
  1. EPOETIN BETA [Suspect]
     Active Substance: ERYTHROPOIETIN
     Indication: Nephrogenic anaemia
     Route: 058
     Dates: start: 20170420, end: 20190822
  2. EPOETIN BETA [Suspect]
     Active Substance: ERYTHROPOIETIN
     Route: 058
     Dates: start: 20190815, end: 20191122
  3. CYCLOSPORINE [Suspect]
     Active Substance: CYCLOSPORINE
     Indication: Aplasia pure red cell
     Route: 065
     Dates: start: 20210531
  4. HUMAN RED BLOOD CELL [Concomitant]
     Active Substance: HUMAN RED BLOOD CELL
     Indication: Haemoglobin decreased
     Dates: start: 20191129
  5. HUMAN RED BLOOD CELL [Concomitant]
     Active Substance: HUMAN RED BLOOD CELL
     Dates: start: 20191216
  6. HUMAN RED BLOOD CELL [Concomitant]
     Active Substance: HUMAN RED BLOOD CELL
     Dates: start: 20191230
  7. HUMAN RED BLOOD CELL [Concomitant]
     Active Substance: HUMAN RED BLOOD CELL
     Dates: start: 20200113
  8. TACROLIMUS [Concomitant]
     Active Substance: TACROLIMUS
     Dates: start: 202102

REACTIONS (2)
  - Aplasia pure red cell [Unknown]
  - Drug intolerance [Unknown]

NARRATIVE: CASE EVENT DATE: 20191101
